FAERS Safety Report 8307376-3 (Version None)
Quarter: 2012Q2

REPORT INFORMATION
  Report Type: 
  Country: None (occurrence: None)
  Receive Date: 20120419
  Receipt Date: 20120410
  Transmission Date: 20120825
  Serious: Yes (Other)
  Sender: FDA-Public Use
  Company Number: 2012MA003254

PATIENT
  Age: 75 Year
  Sex: Male

DRUGS (11)
  1. ATIMOS MODULITE (NO PREF. NAME) [Suspect]
     Dosage: INH
     Route: 055
  2. CYSTEINE HYDROCHLORIDE [Suspect]
  3. FUROSEMIDE [Suspect]
  4. ALBUTEROL SULFATE [Suspect]
  5. RAMIPRIL [Suspect]
     Indication: PRODUCT USED FOR UNKNOWN INDICATION
  6. METFORMIN HYDROCHLORIDE [Suspect]
     Indication: PRODUCT USED FOR UNKNOWN INDICATION
  7. ATORVASTATIN [Suspect]
  8. VERAPAMIL [Suspect]
  9. WARFARIN SODIUM [Suspect]
  10. FORMOTEROL FUMARATE [Suspect]
  11. PREDNISOLONE [Suspect]

REACTIONS (1)
  - HALLUCINATION [None]
